FAERS Safety Report 6556644-4 (Version None)
Quarter: 2010Q1

REPORT INFORMATION
  Report Type: 
  Country: None (occurrence: None)
  Receive Date: 20100128
  Receipt Date: 20100122
  Transmission Date: 20100710
  Serious: Yes (Other)
  Sender: FDA-Public Use
  Company Number: US-KINGPHARMUSA00001-K201000057

PATIENT
  Age: 70 Year
  Sex: Female
  Weight: 72.562 kg

DRUGS (1)
  1. FLECTOR [Suspect]
     Dosage: 0.5 PATCH, SINGLE
     Route: 061
     Dates: start: 20100113, end: 20100113

REACTIONS (3)
  - LIP SWELLING [None]
  - RASH [None]
  - THROAT TIGHTNESS [None]
